FAERS Safety Report 10518690 (Version 1)
Quarter: 2014Q4

REPORT INFORMATION
  Report Type: Spontaneous
  Country: US (occurrence: US)
  Receive Date: 20141015
  Receipt Date: 20141015
  Transmission Date: 20150528
  Serious: Yes (Other)
  Sender: FDA-Public Use
  Company Number: US-LEO PHARMA-221189

PATIENT
  Sex: Female

DRUGS (1)
  1. DAIVOBET [Suspect]
     Active Substance: BETAMETHASONE DIPROPIONATE\CALCIPOTRIENE
     Indication: ECZEMA
     Route: 061
     Dates: start: 20130403, end: 20130404

REACTIONS (10)
  - Infection [Unknown]
  - Abnormal behaviour [Unknown]
  - Product use issue [Unknown]
  - Drug administered to patient of inappropriate age [Unknown]
  - Erythema [Unknown]
  - Burning sensation [Unknown]
  - Inappropriate schedule of drug administration [Unknown]
  - Drug dispensing error [Unknown]
  - Pruritus [Unknown]
  - Wound secretion [Unknown]
